FAERS Safety Report 4815657-0 (Version None)
Quarter: 2005Q4

REPORT INFORMATION
  Report Type: 
  Country: None (occurrence: None)
  Receive Date: 20051027
  Receipt Date: 20051014
  Transmission Date: 20060501
  Serious: Yes (Other)
  Sender: FDA-Public Use
  Company Number: 2005143407

PATIENT
  Age: 66 Year
  Sex: Female

DRUGS (2)
  1. XALATAN [Suspect]
     Indication: GLAUCOMA
     Dosage: 1 DROP (SINGLE INTERVAL:  EVERYDAY), OPHTHALMIC
     Route: 047
     Dates: start: 19991008
  2. ENALAPRIL MALEATE [Concomitant]

REACTIONS (2)
  - DIABETES MELLITUS [None]
  - TENDONITIS [None]
